FAERS Safety Report 6038186-8 (Version None)
Quarter: 2009Q1

REPORT INFORMATION
  Report Type: 
  Country: None (occurrence: None)
  Receive Date: 20090115
  Receipt Date: 20090107
  Transmission Date: 20090719
  Serious: Yes (Other)
  Sender: FDA-Public Use
  Company Number: PHHY2009GB00774

PATIENT

DRUGS (3)
  1. GLEEVEC [Suspect]
     Indication: GASTROINTESTINAL STROMAL TUMOUR
  2. GEMCITABINE [Concomitant]
  3. CARBOPLATIN [Concomitant]

REACTIONS (1)
  - NON-SMALL CELL LUNG CANCER [None]
